FAERS Safety Report 4354224-2 (Version None)
Quarter: 2004Q2

REPORT INFORMATION
  Report Type: 
  Country: None (occurrence: None)
  Receive Date: 20040506
  Receipt Date: 20040505
  Transmission Date: 20050107
  Serious: Yes (Other)
  Sender: FDA-Public Use
  Company Number: US-GLAXOSMITHKLINE-A0509660A

PATIENT
  Age: 46 Year
  Sex: Female

DRUGS (3)
  1. REQUIP [Suspect]
     Indication: PARKINSON'S DISEASE
     Route: 048
  2. ELDEPRYL [Concomitant]
  3. MULTIPLE MEDICATIONS [Concomitant]

REACTIONS (1)
  - JAUNDICE [None]
